FAERS Safety Report 13958796 (Version 2)
Quarter: 2017Q4

REPORT INFORMATION
  Report Type: Report from Study
  Country: AU (occurrence: AU)
  Receive Date: 20170911
  Receipt Date: 20171011
  Transmission Date: 20180320
  Serious: Yes (Hospitalization)
  Sender: FDA-Public Use
  Company Number: AU-VERTEX PHARMACEUTICALS-2017-004825

PATIENT
  Sex: Female

DRUGS (17)
  1. CREON [Concomitant]
     Active Substance: PANCRELIPASE AMYLASE\PANCRELIPASE LIPASE\PANCRELIPASE PROTEASE
  2. SERETIDE [Concomitant]
     Active Substance: FLUTICASONE PROPIONATE\SALMETEROL XINAFOATE
     Dosage: 250/25, 2 PUFFS BD
  3. FLUOXETINE [Interacting]
     Active Substance: FLUOXETINE HYDROCHLORIDE
     Indication: PAIN
     Dosage: 60 MG, QD
     Route: 065
     Dates: start: 20170828
  4. FLUOXETINE [Interacting]
     Active Substance: FLUOXETINE HYDROCHLORIDE
     Indication: NAUSEA
  5. GABAPENTIN. [Concomitant]
     Active Substance: GABAPENTIN
     Dosage: 600 MG, TID
  6. ONDANSETRON [Concomitant]
     Active Substance: ONDANSETRON
     Dosage: 8 MG, TID
  7. HYPERTONIC SALINE SOLUTION [Concomitant]
     Active Substance: SODIUM CHLORIDE
     Dosage: 6ML TWICE DAILY
     Route: 055
  8. PULMOZYME [Concomitant]
     Active Substance: DORNASE ALFA
     Dosage: 2.5 MG
  9. MAXOLON [Concomitant]
     Active Substance: METOCLOPRAMIDE HYDROCHLORIDE
     Dosage: UNK, TID
  10. FLUOXETINE [Interacting]
     Active Substance: FLUOXETINE HYDROCHLORIDE
     Indication: DEPRESSION
     Dosage: 40 MG, QD
     Route: 065
     Dates: end: 2017
  11. CLOFAZIMINE [Concomitant]
     Active Substance: CLOFAZIMINE
     Dosage: 100 MG, QD
     Route: 048
  12. LEVEMIR [Concomitant]
     Active Substance: INSULIN DETEMIR
     Dosage: 5 UT
  13. SINGULAIR [Concomitant]
     Active Substance: MONTELUKAST SODIUM
     Dosage: 5 MG, QD
  14. ORKAMBI [Suspect]
     Active Substance: IVACAFTOR\LUMACAFTOR
     Indication: CYSTIC FIBROSIS
     Dosage: 2 DOSAGE FORM, BID
     Route: 048
     Dates: start: 20170728, end: 2017
  15. AZITHROMYCIN ANHYDROUS. [Concomitant]
     Active Substance: AZITHROMYCIN ANHYDROUS
     Dosage: 250 MG, QD
     Route: 048
  16. ESOMEPRAZOLE [Concomitant]
     Active Substance: ESOMEPRAZOLE
     Dosage: 40 MG, BID
  17. CEFOXITIN [Concomitant]
     Active Substance: CEFOXITIN SODIUM
     Dosage: 6G CONTINUOUS INFUSION DAILY

REACTIONS (5)
  - Intentional self-injury [Recovered/Resolved]
  - Mood altered [Unknown]
  - Drug interaction [Unknown]
  - Depression [Recovering/Resolving]
  - Pulmonary function test decreased [Not Recovered/Not Resolved]

NARRATIVE: CASE EVENT DATE: 2017
